FAERS Safety Report 16529917 (Version 1)
Quarter: 2019Q3

REPORT INFORMATION
  Report Type: Report from Study
  Country: AU (occurrence: AU)
  Receive Date: 20190704
  Receipt Date: 20190704
  Transmission Date: 20191004
  Serious: Yes (Other)
  Sender: FDA-Public Use
  Company Number: AU-REGENERON PHARMACEUTICALS, INC.-2019-38835

PATIENT

DRUGS (2)
  1. EYLEA [Suspect]
     Active Substance: AFLIBERCEPT
     Indication: NEOVASCULAR AGE-RELATED MACULAR DEGENERATION
     Dosage: RIGHT EYE, EVERY EIGHT WEEKS, UNKNOWN DOSE AND TOTAL NUMBER OF INJECTIONS
     Route: 031
     Dates: start: 20180425
  2. EYLEA [Suspect]
     Active Substance: AFLIBERCEPT
     Dosage: LEFT EYE, UNKNOWN DOSE, FREQUENCY AND TOTAL NUMBER OF INJECTIONS
     Route: 031
     Dates: start: 201902

REACTIONS (3)
  - Foreign body sensation in eyes [Recovered/Resolved]
  - Neovascular age-related macular degeneration [Unknown]
  - Injection site discomfort [Recovered/Resolved]

NARRATIVE: CASE EVENT DATE: 201902
